FAERS Safety Report 9505555 (Version 1)
Quarter: 2013Q1

REPORT INFORMATION
  Report Type: Spontaneous
  Country: US (occurrence: None)
  Receive Date: 20130225
  Receipt Date: 20130225
  Transmission Date: 20140127
  Serious: No
  Sender: FDA-Public Use
  Company Number: 369645

PATIENT
  Age: 56 Year
  Sex: Female

DRUGS (2)
  1. VICTOZA (LIRAGLUTIDE) SOLUTION FOR INJECTION 6MG/ML [Suspect]
     Indication: LATENT AUTOIMMUNE DIABETES IN ADULTS
     Route: 058
  2. LEVEMIR FLEX PEN (INSULIN DETEMIR) SOLUTION FOR INJECTION .0024 ML/L [Concomitant]

REACTIONS (3)
  - Drug ineffective [None]
  - Blood glucose increased [None]
  - Increased appetite [None]
